FAERS Safety Report 21685896 (Version 1)
Quarter: 2022Q4

REPORT INFORMATION
  Report Type: Spontaneous
  Country: US (occurrence: US)
  Receive Date: 20221206
  Receipt Date: 20221206
  Transmission Date: 20230113
  Serious: Yes (Hospitalization, Other)
  Sender: FDA-Public Use
  Company Number: US-IPCA LABORATORIES LIMITED-IPC-2022-US-002014

PATIENT

DRUGS (1)
  1. METFORMIN HYDROCHLORIDE [Suspect]
     Active Substance: METFORMIN HYDROCHLORIDE
     Indication: Product used for unknown indication
     Dosage: 100 DOSAGE FORM
     Route: 048

REACTIONS (9)
  - Metabolic acidosis [Recovering/Resolving]
  - Vomiting [Recovering/Resolving]
  - Somnolence [Recovering/Resolving]
  - Tachypnoea [Recovering/Resolving]
  - Depressed mood [Recovering/Resolving]
  - Hypotension [Recovering/Resolving]
  - Toxicity to various agents [Recovering/Resolving]
  - Suicide attempt [Unknown]
  - Overdose [Unknown]
